FAERS Safety Report 9217103 (Version 1)
Quarter: 2013Q2

REPORT INFORMATION
  Report Type: Spontaneous
  Country: GB (occurrence: None)
  Receive Date: 20130404
  Receipt Date: 20130404
  Transmission Date: 20140414
  Serious: Yes (Life-Threatening, Other)
  Sender: FDA-Public Use
  Company Number: 2010CP000254

PATIENT
  Age: 19 Year
  Sex: Female

DRUGS (15)
  1. PERFALGAN [Suspect]
     Dosage: 4650 MG 1 DAY, IV.
     Route: 042
  2. ETOPOPHOS [Suspect]
     Route: 042
     Dates: start: 20070915, end: 20070915
  3. MORPHINE SULFATE [Suspect]
     Route: 042
  4. ACICLOVIR [Suspect]
  5. ALLOPURINOL [Suspect]
     Dosage: 300 MG; 1/1 DAY; PO
     Route: 048
  6. CASPOFUNGIN ACETATE [Suspect]
     Dosage: 70 MG; 1/1 DAY; IV
     Route: 042
  7. CHLORPHENAMINE [Suspect]
     Dosage: 10 MG; 4/1 DAY;IV
     Route: 042
  8. CICLOSPORIN (CICLOSPORIN) [Suspect]
  9. KETALAR [Suspect]
     Indication: PAIN
     Route: 042
     Dates: start: 20070921, end: 20070928
  10. NORETHISTERONE (NORETHISTERONE) [Suspect]
     Dosage: 5 MG; 3/1 DAY; PO
     Route: 048
  11. OMEPRAZOLE (OMEPRAZOLE) [Suspect]
  12. ONDANSETRON (ONDANSETRON) [Suspect]
     Dosage: 8 MG; 3/1 DAY; IV
     Route: 042
  13. TAZOCIN (PIP/TAZO) [Suspect]
     Dosage: 4.5 MG; 3/1 DAY; IV
     Route: 042
  14. VORICONAZOLE [Suspect]
     Dosage: 200 MG; 2/1 DAY; PO
     Route: 048
  15. TOTAL PARENTERAL NUTRITION. [Concomitant]

REACTIONS (4)
  - Dilatation intrahepatic duct acquired [None]
  - Hepatotoxicity [None]
  - Venoocclusive disease [None]
  - Liver function test abnormal [None]
